FAERS Safety Report 7460987-X (Version None)
Quarter: 2011Q2

REPORT INFORMATION
  Report Type: 
  Country: None (occurrence: None)
  Receive Date: 20110505
  Receipt Date: 20101101
  Transmission Date: 20111010
  Serious: No
  Sender: FDA-Public Use
  Company Number: US-AMGEN-USASP2010002698

PATIENT
  Age: 38 Year
  Sex: Female

DRUGS (1)
  1. ENBREL [Suspect]
     Indication: ANKYLOSING SPONDYLITIS
     Dates: start: 20100701, end: 20100901

REACTIONS (5)
  - INJECTION SITE REACTION [None]
  - INJECTION SITE URTICARIA [None]
  - DRUG INEFFECTIVE [None]
  - HEADACHE [None]
  - PHOTOPHOBIA [None]
